FAERS Safety Report 25914019 (Version 1)
Quarter: 2025Q4

REPORT INFORMATION
  Report Type: Spontaneous
  Country: US (occurrence: US)
  Receive Date: 20251013
  Receipt Date: 20251013
  Transmission Date: 20260117
  Serious: No
  Sender: Apozeal Pharmaceuticals
  Company Number: US-Apozeal Pharmaceuticals-2186454

PATIENT
  Age: 4 Year
  Sex: Male

DRUGS (3)
  1. HYDROXYZINE HYDROCHLORIDE [Suspect]
     Active Substance: HYDROXYZINE HYDROCHLORIDE
     Indication: Insomnia
  2. CLONIDINE [Concomitant]
     Active Substance: CLONIDINE
  3. METHYLPHENIDATE [Concomitant]
     Active Substance: METHYLPHENIDATE

REACTIONS (1)
  - Drug ineffective for unapproved indication [Unknown]
